FAERS Safety Report 13613453 (Version 2)
Quarter: 2017Q3

REPORT INFORMATION
  Report Type: Report from Study
  Country: US (occurrence: US)
  Receive Date: 20170605
  Receipt Date: 20170731
  Transmission Date: 20171127
  Serious: Yes (Death, Hospitalization)
  Sender: FDA-Public Use
  Company Number: PHHO2017US008875

PATIENT
  Sex: Male
  Weight: 84.4 kg

DRUGS (1)
  1. GSK1120212 [Suspect]
     Active Substance: TRAMETINIB
     Indication: NEOPLASM
     Dosage: 2 MG, QD
     Route: 048
     Dates: start: 20170118, end: 20170213

REACTIONS (3)
  - Muscular weakness [Unknown]
  - Respiratory failure [Fatal]
  - Hypotension [Unknown]

NARRATIVE: CASE EVENT DATE: 20170213
